FAERS Safety Report 5979044-4 (Version None)
Quarter: 2008Q4

REPORT INFORMATION
  Report Type: 
  Country: None (occurrence: None)
  Receive Date: 20081204
  Receipt Date: 20080716
  Transmission Date: 20090506
  Serious: No
  Sender: FDA-Public Use
  Company Number: US-ABBOTT-08P-163-0455644-00

PATIENT
  Age: 55 Year
  Sex: Female

DRUGS (1)
  1. TRICOR [Suspect]
     Indication: TYPE IIA HYPERLIPIDAEMIA

REACTIONS (2)
  - HOT FLUSH [None]
  - INSOMNIA [None]
